FAERS Safety Report 25598374 (Version 3)
Quarter: 2025Q3

REPORT INFORMATION
  Report Type: Spontaneous
  Country: CR (occurrence: CR)
  Receive Date: 20250723
  Receipt Date: 20250826
  Transmission Date: 20251021
  Serious: Yes (Death, Other)
  Sender: MERCK SHARP & DOHME LLC
  Company Number: CR-009507513-2307232

PATIENT
  Age: 55 Year
  Sex: Female

DRUGS (1)
  1. PEMBROLIZUMAB [Suspect]
     Active Substance: PEMBROLIZUMAB
     Indication: Neoplasm malignant
     Route: 065
     Dates: end: 20250404

REACTIONS (6)
  - Death [Fatal]
  - Vanishing bile duct syndrome [Unknown]
  - Hepatitis cholestatic [Unknown]
  - Drug-induced liver injury [Unknown]
  - Liver injury [Unknown]
  - Breast operation [Unknown]

NARRATIVE: CASE EVENT DATE: 20250101
